FAERS Safety Report 13939232 (Version 2)
Quarter: 2017Q4

REPORT INFORMATION
  Report Type: Spontaneous
  Country: US (occurrence: US)
  Receive Date: 20170906
  Receipt Date: 20171107
  Transmission Date: 20180320
  Serious: No
  Sender: FDA-Public Use
  Company Number: US-009507513-1708USA010611

PATIENT
  Age: 2 Year
  Sex: Male

DRUGS (2)
  1. PROVENTIL [Suspect]
     Active Substance: ALBUTEROL
     Indication: WHEEZING
     Dosage: UNK
     Route: 065
  2. PROVENTIL [Suspect]
     Active Substance: ALBUTEROL
     Indication: COUGH

REACTIONS (2)
  - Product use issue [Unknown]
  - Drug ineffective [Recovered/Resolved]
